FAERS Safety Report 13998378 (Version 2)
Quarter: 2017Q3

REPORT INFORMATION
  Report Type: Spontaneous
  Country: IT (occurrence: IT)
  Receive Date: 20170921
  Receipt Date: 20170929
  Transmission Date: 20171128
  Serious: Yes (Other)
  Sender: FDA-Public Use
  Company Number: IT-GLAXOSMITHKLINE-IT2017GSK145121

PATIENT
  Age: 56 Year
  Sex: Female

DRUGS (12)
  1. PANTORC [Concomitant]
     Active Substance: PANTOPRAZOLE SODIUM
  2. FUROSEMIDE. [Concomitant]
     Active Substance: FUROSEMIDE
  3. TORVAST [Concomitant]
     Active Substance: ATORVASTATIN
  4. ATENOLOL. [Concomitant]
     Active Substance: ATENOLOL
  5. SOTALOL. [Concomitant]
     Active Substance: SOTALOL
  6. FENOFIBRATE. [Concomitant]
     Active Substance: FENOFIBRATE
  7. DICLOFENAC [Suspect]
     Active Substance: DICLOFENAC
     Indication: TOOTHACHE
     Dosage: 4 DF, QD
     Dates: start: 20170726, end: 20170729
  8. CARDIOASPIRIN [Suspect]
     Active Substance: ASPIRIN
     Indication: PLATELET AGGREGATION INHIBITION
     Dosage: 100 MG, QD
     Route: 048
     Dates: start: 20120101, end: 20170729
  9. RAMIPRIL. [Concomitant]
     Active Substance: RAMIPRIL
  10. METFORMIN [Concomitant]
     Active Substance: METFORMIN HYDROCHLORIDE
  11. LIXIANA [Suspect]
     Active Substance: EDOXABAN TOSYLATE
     Indication: ATRIAL FIBRILLATION
     Dosage: 60 MG, QD
     Route: 048
     Dates: start: 20170101, end: 20170729
  12. LANOXIN [Concomitant]
     Active Substance: DIGOXIN

REACTIONS (6)
  - Blood fibrinogen increased [Unknown]
  - International normalised ratio increased [Recovered/Resolved]
  - C-reactive protein increased [Unknown]
  - Drug interaction [Unknown]
  - Medication error [Unknown]
  - Melaena [Recovered/Resolved]

NARRATIVE: CASE EVENT DATE: 20170729
